FAERS Safety Report 4664802-9 (Version None)
Quarter: 2005Q2

REPORT INFORMATION
  Report Type: 
  Country: None (occurrence: None)
  Receive Date: 20050516
  Receipt Date: 20050428
  Transmission Date: 20051028
  Serious: Yes (Hospitalization)
  Sender: FDA-Public Use
  Company Number: DSA_26238_2005

PATIENT
  Age: 40 Year
  Sex: Female

DRUGS (1)
  1. LORAZEPAM [Suspect]
     Dosage: 28 MG ONCE PO
     Route: 048
     Dates: start: 20050401, end: 20050401

REACTIONS (3)
  - FATIGUE [None]
  - INTENTIONAL MISUSE [None]
  - MYDRIASIS [None]
